FAERS Safety Report 6751940-X (Version None)
Quarter: 2010Q2

REPORT INFORMATION
  Report Type: 
  Country: None (occurrence: None)
  Receive Date: 20100602
  Receipt Date: 20100519
  Transmission Date: 20101027
  Serious: Yes (Hospitalization)
  Sender: FDA-Public Use
  Company Number: AT-ELI_LILLY_AND_COMPANY-AT201005006222

PATIENT
  Sex: Female

DRUGS (3)
  1. FORTEO [Suspect]
     Dosage: UNK, DAILY (1/D)
     Route: 065
     Dates: start: 20090515
  2. INSULINE [Concomitant]
     Dosage: UNK, UNKNOWN
     Route: 065
  3. CALCIUM + VITAMIN D [Concomitant]
     Dosage: UNK, UNKNOWN
     Route: 065

REACTIONS (3)
  - BACK PAIN [None]
  - BONE MARROW DISORDER [None]
  - SPINAL FRACTURE [None]
